FAERS Safety Report 10083345 (Version 1)
Quarter: 2014Q2

REPORT INFORMATION
  Report Type: Spontaneous
  Country: US (occurrence: None)
  Receive Date: 20140415
  Receipt Date: 20140415
  Transmission Date: 20141212
  Serious: Yes (Other)
  Sender: FDA-Public Use
  Company Number: None

PATIENT
  Age: 48 Year
  Sex: Female
  Weight: 61.24 kg

DRUGS (1)
  1. CIPROFLOXACIN 500MG DR REDDY^S LAB [Suspect]
     Indication: INFECTION PROPHYLAXIS
     Dosage: 1 PILL, TWICE DAILY, TAKEN BY MOUTH
     Route: 048
     Dates: start: 20140321, end: 20140323

REACTIONS (9)
  - Arthritis [None]
  - Pain in extremity [None]
  - Fatigue [None]
  - Autoimmune disorder [None]
  - Bone pain [None]
  - Myalgia [None]
  - Arthralgia [None]
  - Anxiety [None]
  - Pain in extremity [None]
